FAERS Safety Report 9297413 (Version 1)
Quarter: 2013Q2

REPORT INFORMATION
  Report Type: Spontaneous
  Country: US (occurrence: None)
  Receive Date: 20130517
  Receipt Date: 20130517
  Transmission Date: 20140414
  Serious: Yes (Other)
  Sender: FDA-Public Use
  Company Number: None

PATIENT
  Age: 68 Year
  Sex: Female

DRUGS (11)
  1. STIVARGA 40MG BAYER [Suspect]
     Indication: COLON CANCER
     Dosage: QDX2D
     Route: 048
     Dates: start: 20130419, end: 20130514
  2. KLONOPIN [Concomitant]
  3. LOTREL [Concomitant]
  4. ALLOPURINOL [Concomitant]
  5. IRON [Concomitant]
  6. CALCIUM [Concomitant]
  7. STIVARGA [Concomitant]
  8. ZIAC [Concomitant]
  9. GLUCOTROL [Concomitant]
  10. VITAMIN B 12 [Concomitant]
  11. LOPERAMIDE [Concomitant]

REACTIONS (5)
  - Rash generalised [None]
  - Blood electrolytes decreased [None]
  - Platelet count decreased [None]
  - Epistaxis [None]
  - Dehydration [None]
